FAERS Safety Report 10035710 (Version 1)
Quarter: 2014Q1

REPORT INFORMATION
  Report Type: Spontaneous
  Country: MX (occurrence: MX)
  Receive Date: 20140325
  Receipt Date: 20140325
  Transmission Date: 20141002
  Serious: Yes (Other)
  Sender: FDA-Public Use
  Company Number: MX-GLAXOSMITHKLINE-A1066164A

PATIENT
  Age: 62 Year
  Sex: Male
  Weight: 82 kg

DRUGS (4)
  1. COMBODART [Suspect]
     Indication: PROSTATIC DISORDER
     Dosage: 1CAP AT NIGHT
     Route: 065
     Dates: start: 20140303
  2. TAMSULOSIN [Suspect]
     Indication: PRODUCT USED FOR UNKNOWN INDICATION
     Route: 065
     Dates: end: 2013
  3. CIALIS [Concomitant]
     Indication: BENIGN PROSTATIC HYPERPLASIA
     Dates: end: 20140315
  4. LOSARTAN [Concomitant]

REACTIONS (3)
  - Heart rate decreased [Unknown]
  - Dyspnoea [Unknown]
  - Blood pressure decreased [Unknown]
